FAERS Safety Report 5204942-9 (Version None)
Quarter: 2007Q1

REPORT INFORMATION
  Report Type: 
  Country: None (occurrence: None)
  Receive Date: 20070110
  Receipt Date: 20060911
  Transmission Date: 20070707
  Serious: No
  Sender: FDA-Public Use
  Company Number: US-BRISTOL-MYERS SQUIBB COMPANY-13504329

PATIENT
  Age: 36 Year
  Sex: Male
  Weight: 202 kg

DRUGS (6)
  1. ABILIFY [Suspect]
     Indication: SCHIZOPHRENIA
     Dates: start: 20060801
  2. TRAZODONE HCL [Concomitant]
  3. AMBIEN [Concomitant]
  4. BENICAR [Concomitant]
  5. NORVASC [Concomitant]
  6. THORAZINE [Concomitant]

REACTIONS (8)
  - ANXIETY [None]
  - DIZZINESS [None]
  - DRUG INEFFECTIVE [None]
  - FEELING ABNORMAL [None]
  - HEADACHE [None]
  - RESTLESSNESS [None]
  - SOMNOLENCE [None]
  - TENSION HEADACHE [None]
